FAERS Safety Report 12844670 (Version 4)
Quarter: 2017Q2

REPORT INFORMATION
  Report Type: Spontaneous
  Country: GB (occurrence: GB)
  Receive Date: 20161013
  Receipt Date: 20170404
  Transmission Date: 20170830
  Serious: Yes (Other)
  Sender: FDA-Public Use
  Company Number: GB-PFIZER INC-2016478588

PATIENT
  Age: 12 Year
  Sex: Female

DRUGS (5)
  1. PROPOFOL. [Concomitant]
     Active Substance: PROPOFOL
     Indication: GENERAL ANAESTHESIA
     Dosage: UNK
  2. NITROUS OXIDE. [Interacting]
     Active Substance: NITROUS OXIDE
     Dosage: GASEOUS MIX
  3. METHOTREXATE SODIUM. [Suspect]
     Active Substance: METHOTREXATE SODIUM
     Indication: ACUTE UNDIFFERENTIATED LEUKAEMIA
     Dosage: 12 MG, CYCLIC
     Route: 037
  4. OMEPRAZOLE. [Interacting]
     Active Substance: OMEPRAZOLE
     Dosage: UNK
  5. OXYGEN. [Concomitant]
     Active Substance: OXYGEN
     Dosage: GASEOUS MIX

REACTIONS (8)
  - Brain oedema [Recovered/Resolved]
  - Agitation [Recovered/Resolved]
  - Muscular weakness [Recovered/Resolved with Sequelae]
  - Drug interaction [Recovered/Resolved]
  - Neurotoxicity [Recovered/Resolved]
  - Disinhibition [Recovered/Resolved]
  - Generalised tonic-clonic seizure [Recovered/Resolved]
  - Leukoencephalopathy [Recovered/Resolved]
